FAERS Safety Report 9377282 (Version 1)
Quarter: 2013Q3

REPORT INFORMATION
  Report Type: Spontaneous
  Country: US (occurrence: US)
  Receive Date: 20130701
  Receipt Date: 20130701
  Transmission Date: 20140515
  Serious: No
  Sender: FDA-Public Use
  Company Number: US-PFIZER INC-2013191788

PATIENT
  Age: 53 Year
  Sex: Female
  Weight: 68 kg

DRUGS (4)
  1. PREMPRO [Suspect]
     Indication: HOT FLUSH
     Dosage: 0.3/1.5 MG, 1X/DAY
     Route: 048
     Dates: start: 20130227
  2. PREMPRO [Suspect]
     Indication: ASTHENIA
  3. PREMPRO [Suspect]
     Indication: INSOMNIA
  4. PRISTIQ [Concomitant]
     Dosage: UNK
     Dates: start: 2008

REACTIONS (2)
  - Stomatitis [Unknown]
  - Swollen tongue [Unknown]
